FAERS Safety Report 7570294-2 (Version None)
Quarter: 2011Q2

REPORT INFORMATION
  Report Type: 
  Country: None (occurrence: None)
  Receive Date: 20110622
  Receipt Date: 20110622
  Transmission Date: 20111010
  Serious: Yes (Hospitalization)
  Sender: FDA-Public Use
  Company Number: None

PATIENT
  Sex: Male
  Weight: 59.4 kg

DRUGS (7)
  1. METHOTREXATE [Suspect]
     Dosage: 45 MG
  2. DOXORUBICIN HYDROCHLORIDE [Suspect]
     Dosage: 136 MG
  3. CYTARABINE [Suspect]
     Dosage: 1104 MG
  4. THIOGUANINE [Suspect]
     Dosage: 1360 MG
  5. PEG-L-ASPARAGINASE (K-H) [Suspect]
     Dosage: 4500 IU
  6. DEXAMETHASONE [Suspect]
     Dosage: 504 MG
  7. CYCLOPHOSPHAMIDE [Suspect]
     Dosage: 1840 MG

REACTIONS (17)
  - HYPOAESTHESIA [None]
  - TOXICITY TO VARIOUS AGENTS [None]
  - AGITATION [None]
  - URINARY INCONTINENCE [None]
  - HEMIPARESIS [None]
  - PROGRESSIVE MULTIFOCAL LEUKOENCEPHALOPATHY [None]
  - EPILEPSY [None]
  - DYSPHAGIA [None]
  - FEBRILE NEUTROPENIA [None]
  - DYSARTHRIA [None]
  - MOANING [None]
  - PUPIL FIXED [None]
  - HEART RATE INCREASED [None]
  - MIOSIS [None]
  - OROPHARYNGEAL PAIN [None]
  - MUSCULAR WEAKNESS [None]
  - UNRESPONSIVE TO STIMULI [None]
